FAERS Safety Report 5903518-5 (Version None)
Quarter: 2008Q3

REPORT INFORMATION
  Report Type: 
  Country: None (occurrence: None)
  Receive Date: 20080930
  Receipt Date: 20080924
  Transmission Date: 20090109
  Serious: Yes (Life-Threatening, Hospitalization)
  Sender: FDA-Public Use
  Company Number: US-KINGPHARMUSA00001-K200801110

PATIENT

DRUGS (12)
  1. ALTACE [Suspect]
     Route: 048
  2. INVESTIGATIONAL DRUG [Concomitant]
     Indication: ACUTE CORONARY SYNDROME
     Route: 048
     Dates: start: 20080507
  3. METOPROLOL TARTRATE [Concomitant]
     Dates: start: 20080506
  4. ATORVASTATIN CALCIUM [Concomitant]
     Dates: start: 20080506
  5. HUMAN ACTRAPID [Concomitant]
     Dates: start: 20080506
  6. PANTOPRAZOLE SODIUM [Concomitant]
     Dates: start: 20080526
  7. TRAMADOL HCL [Concomitant]
     Dates: start: 20080526
  8. FRUSEMIDE                          /00032601/ [Concomitant]
     Dates: start: 20080528
  9. ISOSORBIDE DINITRATE [Concomitant]
     Dates: start: 20080603
  10. VELETAN [Concomitant]
     Dates: start: 20080603
  11. HYDRALAZINE HCL [Concomitant]
     Dates: start: 20080605
  12. INSULIN MONOTARD                   /00030503/ [Concomitant]
     Dates: start: 20080509

REACTIONS (3)
  - BRADYCARDIA [None]
  - DYSPNOEA [None]
  - RENAL FAILURE ACUTE [None]
